FAERS Safety Report 21987456 (Version 1)
Quarter: 2023Q1

REPORT INFORMATION
  Report Type: Spontaneous
  Country: BH (occurrence: BH)
  Receive Date: 20230214
  Receipt Date: 20230214
  Transmission Date: 20230418
  Serious: Yes (Hospitalization)
  Sender: FDA-Public Use
  Company Number: BH-ALKEM LABORATORIES LIMITED-BH-ALKEM-2022-05446

PATIENT
  Age: 2 Year
  Sex: Male

DRUGS (5)
  1. ACYCLOVIR [Suspect]
     Active Substance: ACYCLOVIR
     Indication: Rash
     Dosage: UNK
     Route: 042
  2. CEPHALEXIN [Suspect]
     Active Substance: CEPHALEXIN
     Indication: Rash
     Dosage: UNK
     Route: 065
  3. ACETAMINOPHEN [Suspect]
     Active Substance: ACETAMINOPHEN
     Indication: Pyrexia
     Dosage: UNK
     Route: 065
  4. FUSIDIC ACID [Suspect]
     Active Substance: FUSIDIC ACID
     Indication: Rash
     Dosage: UNK
     Route: 061
  5. PANTHENOL [Suspect]
     Active Substance: PANTHENOL
     Indication: Rash
     Dosage: UNK
     Route: 065

REACTIONS (1)
  - Drug ineffective [Unknown]
